FAERS Safety Report 9114927 (Version 1)
Quarter: 2013Q1

REPORT INFORMATION
  Report Type: Spontaneous
  Country: CA (occurrence: None)
  Receive Date: 20130123
  Receipt Date: 20130123
  Transmission Date: 20140127
  Serious: No
  Sender: FDA-Public Use
  Company Number: AECAN201200468

PATIENT
  Age: 56 Year
  Sex: Female

DRUGS (1)
  1. PLASBUMIN [Suspect]
     Indication: HYPOALBUMINAEMIA
     Route: 042
     Dates: start: 20120913, end: 20120913

REACTIONS (2)
  - Dyspnoea [None]
  - Sensation of foreign body [None]
